FAERS Safety Report 6323810-2 (Version None)
Quarter: 2009Q3

REPORT INFORMATION
  Report Type: 
  Country: None (occurrence: None)
  Receive Date: 20090824
  Receipt Date: 20090415
  Transmission Date: 20100115
  Serious: No
  Sender: FDA-Public Use
  Company Number: US-ABBOTT-09P-163-0568674-00

PATIENT
  Sex: Male

DRUGS (12)
  1. NIASPAN [Suspect]
     Indication: BLOOD TRIGLYCERIDES INCREASED
     Dosage: 750/20MG PO QHS
  2. NIASPAN [Suspect]
     Indication: HIGH DENSITY LIPOPROTEIN DECREASED
  3. SIMCOR [Suspect]
     Indication: BLOOD TRIGLYCERIDES INCREASED
     Dates: start: 20090408
  4. SIMCOR [Suspect]
     Indication: HIGH DENSITY LIPOPROTEIN DECREASED
  5. ALLOPURINOL [Concomitant]
     Indication: DRUG USE FOR UNKNOWN INDICATION
  6. ATENOLOL [Concomitant]
     Indication: DRUG USE FOR UNKNOWN INDICATION
  7. CARTIA XT [Concomitant]
     Indication: DRUG USE FOR UNKNOWN INDICATION
  8. UNKNOWN BP MED [Concomitant]
     Indication: DRUG USE FOR UNKNOWN INDICATION
  9. DOXAZOSIN MESYLATE [Concomitant]
     Indication: DRUG USE FOR UNKNOWN INDICATION
  10. HYDROXYZINE [Concomitant]
     Indication: DRUG USE FOR UNKNOWN INDICATION
  11. ASPIRIN [Concomitant]
     Indication: DRUG USE FOR UNKNOWN INDICATION
     Route: 048
  12. CLARITIN [Concomitant]
     Indication: DRUG USE FOR UNKNOWN INDICATION
     Route: 048

REACTIONS (5)
  - ABDOMINAL PAIN [None]
  - ABDOMINAL PAIN UPPER [None]
  - FLUSHING [None]
  - PRURITUS [None]
  - RASH [None]
